FAERS Safety Report 5086201-0 (Version None)
Quarter: 2006Q3

REPORT INFORMATION
  Report Type: 
  Country: None (occurrence: None)
  Receive Date: 20060818
  Receipt Date: 20060809
  Transmission Date: 20061208
  Serious: Yes (Hospitalization)
  Sender: FDA-Public Use
  Company Number: 2006JP001500

PATIENT
  Age: 72 Year
  Sex: Female

DRUGS (21)
  1. FUNGUARD             (MICAFUNGIN) [Suspect]
     Indication: RESPIRATORY MONILIASIS
     Dosage: 50 MG, UID/QD, IV DRIP
     Route: 041
     Dates: start: 20060512, end: 20060518
  2. OMEPRAZOLE [Concomitant]
  3. FULCALIQ 2 (AMOXICILLIN TRIHYDRATE) INJECTION [Concomitant]
  4. MINERALIN (MINERALS NOS) INJECTION [Concomitant]
  5. PREDNISOLONE [Concomitant]
  6. NORVASC [Concomitant]
  7. CRAVIT (LEVOFLOXACIN) TABLET [Concomitant]
  8. KLARICID (CLARITHROMYCIN) TABLET [Concomitant]
  9. GASTER D ORODISPERSABLE CR TABLET [Concomitant]
  10. BIO THREE POWDER [Concomitant]
  11. CEREKINON (TRIMEBUTINE MALEATE0 TABLET [Concomitant]
  12. SOL MEDROL (METHYLPREDNISOLONE, SUCCINATE SODIUM) INJECTION [Concomitant]
  13. MEROPEN (MEROPENEM) INJECTION [Concomitant]
  14. MINOCYCLINE HYDROCHLORIDE (MINOCYCLINE HYDROCHLORIDE) INJECTION [Concomitant]
  15. VENILON (IMMUNOGLOBULIN HUMAN NORMAL) INJECTION [Concomitant]
  16. DORMICUM (MIDAZOLAM) INJECTION [Concomitant]
  17. MUSCULAX (VECURONIUM BROMIDE) INJECTION [Concomitant]
  18. TARGOCID [Concomitant]
  19. NOVOLIN R (INSULIN HUMAN) INJECTION [Concomitant]
  20. ROCEPHIN [Concomitant]
  21. UNASYN S (AMPICILLIN SODIUM, SULBACTAM SODIUM) INJECTION [Concomitant]

REACTIONS (11)
  - BLOOD PRESSURE INCREASED [None]
  - CATHETER SITE HAEMORRHAGE [None]
  - DRUG INEFFECTIVE [None]
  - EPISTAXIS [None]
  - HAEMATURIA [None]
  - MOUTH HAEMORRHAGE [None]
  - PALPITATIONS [None]
  - PETECHIAE [None]
  - PLATELET COUNT DECREASED [None]
  - PURPURA [None]
  - URINARY BLADDER HAEMORRHAGE [None]
